FAERS Safety Report 7600199-X (Version None)
Quarter: 2011Q3

REPORT INFORMATION
  Report Type: 
  Country: None (occurrence: None)
  Receive Date: 20110711
  Receipt Date: 20110705
  Transmission Date: 20111222
  Serious: Yes (Life-Threatening, Hospitalization, Other)
  Sender: FDA-Public Use
  Company Number: PHHY2011FR59800

PATIENT
  Sex: Male

DRUGS (6)
  1. LANTUS [Concomitant]
  2. ISOPTIN [Suspect]
     Indication: HYPERTENSION
     Dosage: 240 MG, DAILY
  3. ALDACTONE [Suspect]
     Indication: HYPERTENSION
     Dosage: 50 MG, DAILY
     Dates: start: 20110220
  4. NOVOMIX [Concomitant]
  5. CRESTOR [Concomitant]
     Dosage: 10 MG, UNK
  6. RASILEZ [Suspect]
     Indication: HYPERTENSION
     Dosage: 300 MG,DAILY
     Dates: start: 20110101

REACTIONS (5)
  - MALAISE [None]
  - ELECTROCARDIOGRAM QRS COMPLEX ABNORMAL [None]
  - HYPERKALAEMIA [None]
  - BLOOD CREATININE INCREASED [None]
  - BRADYCARDIA [None]
